FAERS Safety Report 4698553-1 (Version None)
Quarter: 2005Q2

REPORT INFORMATION
  Report Type: 
  Country: None (occurrence: None)
  Receive Date: 20050622
  Receipt Date: 20050607
  Transmission Date: 20051028
  Serious: Yes (Other)
  Sender: FDA-Public Use
  Company Number: 2005-02028

PATIENT
  Age: 33 Year
  Sex: Female
  Weight: 48.5 kg

DRUGS (7)
  1. TRIHEXYPHENIDYL HCL [Suspect]
     Indication: DYSTONIA
     Dosage: 1 TABLET, TID, ORAL
     Route: 048
     Dates: start: 20050411, end: 20050526
  2. ZONEGRAN [Concomitant]
  3. ZANAFLEX [Concomitant]
  4. XANAX [Concomitant]
  5. KLONOPIN [Concomitant]
  6. OXYCONTIN [Concomitant]
  7. MEGACE [Concomitant]

REACTIONS (20)
  - AGITATION [None]
  - CONDITION AGGRAVATED [None]
  - CONFUSIONAL STATE [None]
  - CONVULSION [None]
  - COORDINATION ABNORMAL [None]
  - DIZZINESS [None]
  - DRUG DISPENSING ERROR [None]
  - DYSTONIA [None]
  - EYE PAIN [None]
  - FALL [None]
  - GAIT DISTURBANCE [None]
  - HALLUCINATION, VISUAL [None]
  - HEADACHE [None]
  - INSOMNIA [None]
  - LOSS OF CONSCIOUSNESS [None]
  - SPEECH DISORDER DEVELOPMENTAL [None]
  - SWELLING FACE [None]
  - TOOTH FRACTURE [None]
  - TREMOR [None]
  - VISION BLURRED [None]
